FAERS Safety Report 22365072 (Version 1)
Quarter: 2023Q2

REPORT INFORMATION
  Report Type: Report from Study
  Country: TW (occurrence: TW)
  Receive Date: 20230525
  Receipt Date: 20230525
  Transmission Date: 20230721
  Serious: Yes (Hospitalization, Other)
  Sender: FDA-Public Use
  Company Number: TW-GILEAD-2023-0629416

PATIENT
  Age: 49 Year
  Sex: Female

DRUGS (3)
  1. TENOFOVIR ALAFENAMIDE [Suspect]
     Active Substance: TENOFOVIR ALAFENAMIDE
     Indication: Hepatitis B
     Dosage: 25 MG UNK
     Route: 048
     Dates: start: 20230310
  2. BENLYSTA [Concomitant]
     Active Substance: BELIMUMAB
     Dosage: UNK
     Dates: start: 20230308
  3. SANDIMMUNE [Concomitant]
     Active Substance: CYCLOSPORINE
     Dosage: UNK
     Dates: start: 20230325

REACTIONS (1)
  - Systemic lupus erythematosus [Unknown]
